FAERS Safety Report 17909198 (Version 1)
Quarter: 2020Q2

REPORT INFORMATION
  Report Type: Spontaneous
  Country: US (occurrence: US)
  Receive Date: 20200617
  Receipt Date: 20200617
  Transmission Date: 20200714
  Serious: No
  Sender: FDA-Public Use
  Company Number: US-TEVA-2020-US-1775146

PATIENT
  Sex: Female

DRUGS (1)
  1. QVAR REDIHALER [Suspect]
     Active Substance: BECLOMETHASONE DIPROPIONATE
     Dosage: START DATE: ABOUT A YEAR OR TWO AGO, DOSE: ONE PUFF IN THE MORNING AND ONE PUFF AT NIGHT
     Route: 065

REACTIONS (2)
  - Candida infection [Recovered/Resolved]
  - Intercepted product administration error [Unknown]
